FAERS Safety Report 6410679-0 (Version None)
Quarter: 2009Q4

REPORT INFORMATION
  Report Type: 
  Country: None (occurrence: None)
  Receive Date: 20091022
  Receipt Date: 20091014
  Transmission Date: 20100525
  Serious: Yes (Other)
  Sender: FDA-Public Use
  Company Number: US-B.I. PHARMACEUTICALS,INC./RIDGEFIELD-2009-DE-06517GD

PATIENT
  Age: 59 Year
  Sex: Female
  Weight: 71.1 kg

DRUGS (19)
  1. RANITIDINE [Suspect]
     Indication: GASTROOESOPHAGEAL REFLUX DISEASE
     Dosage: 300 MG
  2. DIVALPROEX SODIUM [Suspect]
     Indication: GRAND MAL CONVULSION
     Dosage: 1 G
  3. DIVALPROEX SODIUM [Suspect]
     Dosage: 750 MG
  4. DIVALPROEX SODIUM [Suspect]
     Dosage: 500 MG
  5. ASPIRIN [Suspect]
     Indication: CARDIOVASCULAR EVENT PROPHYLAXIS
     Dosage: 81 MG
  6. ATENOLOL [Suspect]
     Indication: HYPERTENSION
     Dosage: 50 MG
  7. BENAZEPRIL HYDROCHLORIDE [Suspect]
     Indication: HYPERTENSION
     Dosage: 60 MG
  8. HYDROCHLOROTHIAZIDE [Suspect]
     Indication: HYPERTENSION
     Dosage: 50 MG
  9. GLIPIZIDE [Suspect]
     Indication: TYPE 2 DIABETES MELLITUS
     Dosage: 10 MG
  10. SIMVASTATIN [Suspect]
     Indication: HYPERLIPIDAEMIA
     Dosage: 10 MG
  11. NIACIN [Suspect]
     Indication: HYPERLIPIDAEMIA
     Dosage: 1500 MG
  12. LEVOTHYROXINE SODIUM [Suspect]
     Indication: HYPOTHYROIDISM
     Dosage: 25 MG
  13. RISPERIDONE [Suspect]
     Indication: PSYCHOTIC DISORDER
     Dosage: 2.5 MG
  14. BROMOCRIPTINE [Suspect]
     Indication: ADVERSE DRUG REACTION
     Dosage: 5 MG
  15. LACTULOSE [Suspect]
     Indication: CONSTIPATION
     Dosage: 30 ML
  16. LORAZEPAM [Suspect]
     Indication: GRAND MAL CONVULSION
     Dosage: 1 MG
  17. CALCIUM [Suspect]
     Indication: SUPPLEMENTATION THERAPY
  18. VITAMIN D [Suspect]
     Indication: SUPPLEMENTATION THERAPY
  19. VITAMIN E [Suspect]
     Indication: SUPPLEMENTATION THERAPY

REACTIONS (10)
  - ABNORMAL BEHAVIOUR [None]
  - CONFUSIONAL STATE [None]
  - DIZZINESS [None]
  - DRUG INTERACTION [None]
  - DRUG TOXICITY [None]
  - HYPERGLYCAEMIA [None]
  - HYPOTENSION [None]
  - LETHARGY [None]
  - SPEECH DISORDER [None]
  - TREMOR [None]
